FAERS Safety Report 5931278-0 (Version None)
Quarter: 2008Q4

REPORT INFORMATION
  Report Type: 
  Country: None (occurrence: None)
  Receive Date: 20081027
  Receipt Date: 20081015
  Transmission Date: 20090506
  Serious: Yes (Death, Other)
  Sender: FDA-Public Use
  Company Number: US-AVENTIS-200718323US

PATIENT
  Sex: Female
  Weight: 52 kg

DRUGS (30)
  1. KETEK [Suspect]
     Dates: start: 20061213
  2. KETEK [Suspect]
     Dates: start: 20061213
  3. PREDNISONE TAB [Concomitant]
     Dosage: DOSE: UNK
     Dates: start: 20061213
  4. PREDNISONE TAB [Concomitant]
     Dosage: DOSE: UNK
     Dates: start: 20061213
  5. UNKNOWN DRUG [Concomitant]
     Dosage: DOSE: UNK
     Dates: start: 20061213
  6. UNKNOWN DRUG [Concomitant]
     Dosage: DOSE: UNK
     Dates: start: 20061213
  7. PACERONE [Concomitant]
     Dosage: DOSE: UNK
  8. ACIPHEX [Concomitant]
     Dosage: DOSE: UNK
  9. POTASSIUM CHLORIDE [Concomitant]
     Dosage: DOSE: UNK
  10. TRICOR                             /00090101/ [Concomitant]
     Dosage: DOSE: UNK
  11. TOPROL-XL [Concomitant]
     Dosage: DOSE: UNK
  12. COUMADIN [Concomitant]
     Dosage: DOSE: UNK
  13. LASIX [Concomitant]
     Dosage: DOSE: UNK
  14. ADVAIR DISKUS 100/50 [Concomitant]
     Dosage: DOSE: 1 INHALATION DAILY
  15. XOPENEX [Concomitant]
     Dosage: DOSE: UNK
  16. VANCOMYCIN HYDROCHLORIDE [Concomitant]
     Dosage: DOSE: UNK
     Dates: start: 20070406, end: 20070416
  17. VANCOMYCIN HYDROCHLORIDE [Concomitant]
     Dosage: DOSE: UNK
     Dates: start: 20070509, end: 20070515
  18. DIFLUCAN [Concomitant]
     Dosage: DOSE: UNK
     Dates: start: 20070401, end: 20070421
  19. AZACTAM                            /00638601/ [Concomitant]
     Dosage: DOSE: UNK
     Dates: start: 20070409, end: 20070421
  20. AZACTAM                            /00638601/ [Concomitant]
     Dosage: DOSE: UNK
     Dates: start: 20070501, end: 20070515
  21. ZYVOX [Concomitant]
     Dosage: DOSE: UNK
     Dates: start: 20070416, end: 20070421
  22. ACYCLOVIR [Concomitant]
     Dosage: DOSE: UNK
     Dates: start: 20070421, end: 20070429
  23. FLAGYL [Concomitant]
     Dosage: DOSE: UNK
     Dates: start: 20070408, end: 20070101
  24. FLAGYL [Concomitant]
     Dosage: DOSE: UNK
     Dates: start: 20070101, end: 20070515
  25. LEVAQUIN [Concomitant]
     Dosage: DOSE: UNK
     Dates: start: 20070101, end: 20070515
  26. INSULIN [Concomitant]
     Dosage: DOSE: UNK
     Route: 058
     Dates: start: 20070404, end: 20070101
  27. INSULIN [Concomitant]
     Dosage: DOSE: UNK
     Route: 042
     Dates: start: 20070101
  28. BLOOD TRANSFUSIONS [Concomitant]
     Dosage: DOSE: MANY
     Dates: start: 20070405
  29. TUBE FEEDING [Concomitant]
     Dosage: DOSE: UNK
     Dates: start: 20070401
  30. SOLUTIONS FOR PARENTERAL NUTRITION [Concomitant]

REACTIONS (21)
  - ANAEMIA [None]
  - ASCITES [None]
  - AUTOIMMUNE HEPATITIS [None]
  - BILIARY TRACT DISORDER [None]
  - CARDIO-RESPIRATORY ARREST [None]
  - COAGULOPATHY [None]
  - DECUBITUS ULCER [None]
  - HAEMATURIA [None]
  - HEPATIC ENZYME INCREASED [None]
  - HYPOTENSION [None]
  - ISCHAEMIA [None]
  - JAUNDICE CHOLESTATIC [None]
  - MECHANICAL VENTILATION [None]
  - MULTI-ORGAN FAILURE [None]
  - PERITONITIS [None]
  - PLEURAL HAEMORRHAGE [None]
  - POST PROCEDURAL HAEMORRHAGE [None]
  - RENAL FAILURE ACUTE [None]
  - SEPTIC SHOCK [None]
  - SYSTEMIC LUPUS ERYTHEMATOSUS [None]
  - THROMBOCYTOPENIA [None]
